FAERS Safety Report 9439884 (Version 2)
Quarter: 2014Q3

REPORT INFORMATION
  Report Type: Spontaneous
  Country: US (occurrence: US)
  Receive Date: 20130805
  Receipt Date: 20140730
  Transmission Date: 20150326
  Serious: Yes (Hospitalization)
  Sender: FDA-Public Use
  Company Number: US-BAYER-2013-092279

PATIENT
  Age: 50 Year
  Sex: Female

DRUGS (7)
  1. YASMIN [Suspect]
     Active Substance: DROSPIRENONE\ETHINYL ESTRADIOL
  2. OCELLA [Suspect]
     Active Substance: DROSPIRENONE\ETHINYL ESTRADIOL
  3. YAZ [Suspect]
     Active Substance: DROSPIRENONE\ETHINYL ESTRADIOL
  4. VERAPAMIL [Concomitant]
     Active Substance: VERAPAMIL HYDROCHLORIDE
  5. LEVOTHYROXINE [Concomitant]
     Active Substance: LEVOTHYROXINE
  6. BENZOYL PEROXIDE W/CLINDAMYCIN [Concomitant]
  7. OXYCODONE [Concomitant]
     Active Substance: OXYCODONE

REACTIONS (4)
  - Injury [None]
  - Emotional distress [None]
  - Intracranial aneurysm [None]
  - Subarachnoid haemorrhage [None]

NARRATIVE: CASE EVENT DATE: 20110108
